FAERS Safety Report 9144836 (Version 1)
Quarter: 2013Q1

REPORT INFORMATION
  Report Type: Spontaneous
  Country: US (occurrence: US)
  Receive Date: 20130307
  Receipt Date: 20130307
  Transmission Date: 20140127
  Serious: No
  Sender: FDA-Public Use
  Company Number: US-009507513-1303USA001382

PATIENT
  Sex: Female

DRUGS (1)
  1. AZASITE [Suspect]
     Indication: EYE INFECTION BACTERIAL
     Dosage: ONE DROP IN EACH EYE ONCE A DAY FOR 20 DAYS
     Route: 047
     Dates: start: 20130216

REACTIONS (3)
  - Drug prescribing error [Unknown]
  - Product quality issue [Unknown]
  - No adverse event [Unknown]
